FAERS Safety Report 9648649 (Version 2)
Quarter: 2013Q4

REPORT INFORMATION
  Report Type: Spontaneous
  Country: RU (occurrence: RU)
  Receive Date: 20131028
  Receipt Date: 20131028
  Transmission Date: 20140711
  Serious: Yes (Death, Life-Threatening)
  Sender: FDA-Public Use
  Company Number: RU-ASTRAZENECA-2013SE77717

PATIENT
  Age: 26 Year
  Sex: Male

DRUGS (9)
  1. MARCAINE SPINAL [Suspect]
     Indication: SPINAL ANAESTHESIA
     Route: 037
     Dates: start: 20121129, end: 20121129
  2. ADRENALIN [Concomitant]
     Route: 040
  3. ATROPIN [Concomitant]
  4. DOPAMINE [Concomitant]
  5. DIAZEPAM [Concomitant]
  6. THIOPENTALUM-NATRIUM [Concomitant]
  7. LYSTHENON [Concomitant]
  8. METYPRED [Concomitant]
  9. HEPARIN [Concomitant]

REACTIONS (9)
  - Haemodynamic instability [Unknown]
  - Respiratory failure [Fatal]
  - Hypotension [Fatal]
  - Bradycardia [Fatal]
  - Depressed level of consciousness [Fatal]
  - Anaesthetic complication [Fatal]
  - Cerebral artery embolism [Unknown]
  - Medication error [Fatal]
  - Cardiac arrest [Unknown]
